FAERS Safety Report 6700265-7 (Version None)
Quarter: 2010Q2

REPORT INFORMATION
  Report Type: 
  Country: None (occurrence: None)
  Receive Date: 20100428
  Receipt Date: 20100421
  Transmission Date: 20101027
  Serious: Yes (Other)
  Sender: FDA-Public Use
  Company Number: JP-ASTRAZENECA-2010SE18469

PATIENT
  Age: 33 Year
  Sex: Male
  Weight: 74 kg

DRUGS (2)
  1. DIPRIVAN [Suspect]
     Indication: GENERAL ANAESTHESIA
     Dosage: DOSE UNKNOWN
     Route: 042
  2. VECURONIUM BROMIDE [Concomitant]
     Indication: HYPOTONIA
     Dosage: DOSE UNKNOWN
     Route: 065

REACTIONS (3)
  - ATRIOVENTRICULAR BLOCK [None]
  - SUPRAVENTRICULAR EXTRASYSTOLES [None]
  - VENTRICULAR EXTRASYSTOLES [None]
